FAERS Safety Report 26096531 (Version 1)
Quarter: 2025Q4

REPORT INFORMATION
  Report Type: Spontaneous
  Country: EU (occurrence: EU)
  Receive Date: 20251127
  Receipt Date: 20251127
  Transmission Date: 20260118
  Serious: Yes (Life-Threatening)
  Sender: RANBAXY
  Company Number: EU-URPL-DML-MLP.4401.1.3223.2021

PATIENT
  Age: 28 Year
  Sex: Female
  Weight: 70 kg

DRUGS (2)
  1. PREGABALIN [Suspect]
     Active Substance: PREGABALIN
     Indication: Product used for unknown indication
     Dosage: 56 TABLETS, EACH CONTAINING 75 MG
     Route: 048
     Dates: start: 20210514, end: 20210514
  2. RISPERIDONE [Suspect]
     Active Substance: RISPERIDONE
     Indication: Product used for unknown indication
     Dosage: 20 TABLETS, EACH CONTAINING 2 MG
     Route: 048
     Dates: start: 20210514, end: 20210514

REACTIONS (5)
  - Somnolence [Recovering/Resolving]
  - Confusional state [Recovering/Resolving]
  - Toxicity to various agents [Unknown]
  - Toxicity to various agents [Unknown]
  - Suicide attempt [Unknown]

NARRATIVE: CASE EVENT DATE: 20210514
